FAERS Safety Report 15195889 (Version 5)
Quarter: 2019Q1

REPORT INFORMATION
  Report Type: Spontaneous
  Country: US (occurrence: US)
  Receive Date: 20180725
  Receipt Date: 20190308
  Transmission Date: 20190417
  Serious: No
  Sender: FDA-Public Use
  Company Number: US-PFIZER INC-2018298149

PATIENT
  Age: 46 Year
  Sex: Female

DRUGS (7)
  1. HYDROCODONE/ACETAMINOPHEN [Suspect]
     Active Substance: ACETAMINOPHEN\HYDROCODONE
     Dosage: UNK
  2. ACETAMINOPHEN. [Suspect]
     Active Substance: ACETAMINOPHEN
     Dosage: UNK
  3. PROPOXYPHENE NAPSYLATE [Suspect]
     Active Substance: PROPOXYPHENE NAPSYLATE
     Dosage: UNK
  4. DIPHENHYDRAMINE HCL [Suspect]
     Active Substance: DIPHENHYDRAMINE HYDROCHLORIDE
     Dosage: UNK
  5. IBUPROFEN. [Suspect]
     Active Substance: IBUPROFEN
     Dosage: UNK
  6. DOXYLAMINE/PSEUDOEPHEDRINE [Suspect]
     Active Substance: DOXYLAMINE SUCCINATE\PSEUDOEPHEDRINE HYDROCHLORIDE
     Dosage: UNK
  7. DEXTROMETHORPHAN/DOXYLAMINE/PARACETAMOL/PSEUDOEPHEDRINE [Suspect]
     Active Substance: ACETAMINOPHEN\DEXTROMETHORPHAN\DOXYLAMINE\PSEUDOEPHEDRINE
     Dosage: UNK

REACTIONS (1)
  - Drug hypersensitivity [Unknown]
